FAERS Safety Report 6692805-1 (Version None)
Quarter: 2010Q2

REPORT INFORMATION
  Report Type: 
  Country: None (occurrence: None)
  Receive Date: 20100422
  Receipt Date: 20100419
  Transmission Date: 20101027
  Serious: Yes (Hospitalization)
  Sender: FDA-Public Use
  Company Number: US-RB-003601-10

PATIENT
  Age: 49 Year
  Sex: Male

DRUGS (5)
  1. SUBOXONE [Suspect]
     Route: 060
     Dates: start: 20100201
  2. ADVAIR DISKUS 100/50 [Concomitant]
     Dosage: DOSING DETAILS UNKNOWN
     Route: 065
  3. SPIRIVA [Concomitant]
     Dosage: DOSING DETAILS UKNOWN
     Route: 065
  4. XOPENEX [Concomitant]
     Indication: ASTHMA
     Dosage: DOSING DETAILS UNKNOWN
     Route: 065
  5. ALBUTEROL [Concomitant]
     Indication: ASTHMA
     Dosage: DOSING DETAILS UNKNOWN
     Route: 065

REACTIONS (2)
  - OROPHARYNGEAL PAIN [None]
  - PNEUMONIA [None]
